FAERS Safety Report 9367002 (Version 1)
Quarter: 2013Q2

REPORT INFORMATION
  Report Type: Spontaneous
  Country: AU (occurrence: AU)
  Receive Date: 20130625
  Receipt Date: 20130625
  Transmission Date: 20140414
  Serious: Yes (Death, Other)
  Sender: FDA-Public Use
  Company Number: AU-ACTELION-A-CH2012-60349

PATIENT
  Age: 82 Year
  Sex: Female
  Weight: 63 kg

DRUGS (8)
  1. TRACLEER [Suspect]
     Indication: PULMONARY ARTERIAL HYPERTENSION
     Dosage: 62.5 MG, BID
     Route: 048
     Dates: start: 20090716, end: 20130612
  2. GLICAZIDA [Concomitant]
  3. FRUSEMIDE [Concomitant]
  4. COPLAVIX [Concomitant]
  5. AMLODIPINE [Concomitant]
  6. ATORVASTATIN [Concomitant]
  7. OMEPRAZOLE [Concomitant]
  8. MIXTARD [Concomitant]

REACTIONS (7)
  - Disease progression [Fatal]
  - Dyspnoea [Fatal]
  - Hypoxia [Fatal]
  - Exercise test abnormal [Fatal]
  - Cardiopulmonary failure [Fatal]
  - Myocardial ischaemia [Fatal]
  - Pulmonary arterial hypertension [Fatal]
